FAERS Safety Report 25679233 (Version 1)
Quarter: 2025Q3

REPORT INFORMATION
  Report Type: Spontaneous
  Country: US (occurrence: US)
  Receive Date: 20250814
  Receipt Date: 20250814
  Transmission Date: 20251020
  Serious: Yes (Other)
  Sender: UCB
  Company Number: US-UCBSA-2025049536

PATIENT
  Sex: Female
  Weight: 91.2 kg

DRUGS (1)
  1. RYSTIGGO [Suspect]
     Active Substance: ROZANOLIXIZUMAB-NOLI
     Indication: Myasthenia gravis

REACTIONS (2)
  - Myasthenia gravis [Unknown]
  - Therapeutic response shortened [Unknown]
